FAERS Safety Report 5518480-7 (Version None)
Quarter: 2007Q4

REPORT INFORMATION
  Report Type: 
  Country: None (occurrence: None)
  Receive Date: 20071113
  Receipt Date: 20071113
  Transmission Date: 20080405
  Serious: Yes (Life-Threatening, Hospitalization)
  Sender: FDA-Public Use
  Company Number: None

PATIENT
  Age: 67 Year
  Sex: Female

DRUGS (21)
  1. CYTARABINE [Suspect]
     Indication: ACUTE MYELOID LEUKAEMIA
     Dosage: 160 MG DAILY IV
     Route: 042
     Dates: start: 20060826, end: 20060828
  2. ALBUTEROL [Concomitant]
  3. PROTROPIN [Concomitant]
  4. MAGIC MOUTHWASH [Concomitant]
  5. PROTONIX [Concomitant]
  6. LASIX [Concomitant]
  7. ACETYLCYSTEINE [Concomitant]
  8. MOXIFLOXACIN HCL [Concomitant]
  9. ZOLOFT [Concomitant]
  10. AMBIEN [Concomitant]
  11. TYLENOL [Concomitant]
  12. CLOTRIMAZOLE [Concomitant]
  13. EPOGEN [Concomitant]
  14. INSULIN SLIDING SCALE [Concomitant]
  15. ZOSYN [Concomitant]
  16. MORPHINE [Concomitant]
  17. LOVENOX [Concomitant]
  18. MULTI-VITAMIN [Concomitant]
  19. ASCORBIC ACID [Concomitant]
  20. VANCOMYCIN [Concomitant]
  21. SOLU-MEDROL [Concomitant]

REACTIONS (3)
  - ACUTE RESPIRATORY DISTRESS SYNDROME [None]
  - PULMONARY ALVEOLAR HAEMORRHAGE [None]
  - RESPIRATORY FAILURE [None]
